FAERS Safety Report 19015395 (Version 2)
Quarter: 2022Q1

REPORT INFORMATION
  Report Type: Spontaneous
  Country: FR (occurrence: FR)
  Receive Date: 20210317
  Receipt Date: 20220323
  Transmission Date: 20220424
  Serious: Yes (Other)
  Sender: FDA-Public Use
  Company Number: FR-AFSSAPS-PO20210904

PATIENT
  Age: 72 Year
  Sex: Male
  Weight: 80 kg

DRUGS (5)
  1. VALACYCLOVIR [Suspect]
     Active Substance: VALACYCLOVIR HYDROCHLORIDE
     Indication: Antiviral prophylaxis
     Dosage: 500 MILLIGRAM, DAILY
     Route: 048
     Dates: start: 20210209, end: 20210222
  2. DEXAMETHASONE [Suspect]
     Active Substance: DEXAMETHASONE
     Indication: Plasma cell myeloma
     Dosage: ()
     Route: 048
     Dates: start: 20210209, end: 20210222
  3. VELCADE [Suspect]
     Active Substance: BORTEZOMIB
     Indication: Plasma cell myeloma
     Dosage: 3.9 MILLIGRAM/SQ. METER, WEEKLY
     Route: 042
     Dates: start: 20210209
  4. REVLIMID [Suspect]
     Active Substance: LENALIDOMIDE
     Indication: Plasma cell myeloma
     Dosage: 25 MILLIGRAM, DAILY
     Route: 048
     Dates: start: 20210209, end: 20210222
  5. BACTRIM [Suspect]
     Active Substance: SULFAMETHOXAZOLE\TRIMETHOPRIM
     Indication: Antibiotic prophylaxis
     Dosage: 3 DOSAGE FORM, WEEKLY
     Route: 048
     Dates: start: 20210209, end: 20210222

REACTIONS (2)
  - Pruritus [Recovering/Resolving]
  - Rash maculo-papular [Recovering/Resolving]

NARRATIVE: CASE EVENT DATE: 20210218
